FAERS Safety Report 8761020 (Version 3)
Quarter: 2013Q1

REPORT INFORMATION
  Report Type: Report from Study
  Country: JP (occurrence: JP)
  Receive Date: 20120830
  Receipt Date: 20130205
  Transmission Date: 20140127
  Serious: Yes (Hospitalization, Other)
  Sender: FDA-Public Use
  Company Number: JP-VERTEX PHARMACEUTICAL INC.-AE-2012-007322

PATIENT
  Age: 62 Year
  Sex: Male

DRUGS (24)
  1. VX-950 (TELAPREVIR) [Suspect]
     Indication: CHRONIC HEPATITIS C
     Dosage: 2250 MG, QD
     Route: 048
     Dates: start: 20120314, end: 20120320
  2. VX-950 (TELAPREVIR) [Suspect]
     Dosage: 750 MG, QD
     Route: 048
     Dates: start: 20120321, end: 20120501
  3. VX-950 (TELAPREVIR) [Suspect]
     Dosage: 1500 MG, QD
     Route: 048
     Dates: start: 20120502, end: 20120531
  4. REBETOL [Suspect]
     Indication: CHRONIC HEPATITIS C
     Dosage: 400 MG, QD
     Route: 048
     Dates: start: 20120314, end: 20120509
  5. REBETOL [Suspect]
     Dosage: 600 MG, QD
     Route: 048
     Dates: start: 20120510, end: 20120606
  6. REBETOL [Suspect]
     Dosage: 400 MG, QD
     Route: 048
     Dates: start: 20120607, end: 20120620
  7. REBETOL [Suspect]
     Dosage: 200 MG, QD
     Route: 048
     Dates: start: 20120621, end: 20120711
  8. REBETOL [Suspect]
     Dosage: 400 MG, QD
     Route: 048
     Dates: start: 20120712, end: 20120906
  9. PEGINTRON [Suspect]
     Indication: CHRONIC HEPATITIS C
     Dosage: 1.12 ?G/KG, QW
     Route: 058
     Dates: start: 20120314, end: 20120411
  10. PEGINTRON [Suspect]
     Dosage: .84 ?G/KG, QW
     Route: 058
     Dates: start: 20120412, end: 20120509
  11. PEGINTRON [Suspect]
     Dosage: .98 ?G/KG, QW
     Route: 058
     Dates: start: 20120510, end: 20120621
  12. PEGINTRON [Suspect]
     Dosage: .84 ?G/KG, QW
     Route: 058
     Dates: start: 20120628, end: 20120712
  13. PEGINTRON [Suspect]
     Dosage: .98 ?G/KG, QW
     Route: 058
     Dates: start: 20120719, end: 20120823
  14. URSO [Concomitant]
     Dosage: 900 MG, QD
     Route: 048
     Dates: start: 20030920, end: 20120410
  15. BLOPRESS [Concomitant]
     Dosage: 4 MG, QD
     Route: 048
     Dates: start: 20040628
  16. ZYLORIC [Concomitant]
     Dosage: 100 MG, QD
     Route: 048
     Dates: start: 20050920
  17. URALYT [Concomitant]
     Dosage: 6 DF, QD
     Route: 048
     Dates: start: 20050920
  18. LANSOPRAZOLE [Concomitant]
     Dosage: 15 MG, QD
     Route: 048
     Dates: start: 20090626
  19. ALINAMIN-F [Concomitant]
     Dosage: 75 MG, QD
     Route: 048
     Dates: start: 20100629
  20. FERROMIA [Concomitant]
     Dosage: 50 MG, QD
     Route: 048
     Dates: start: 20120228, end: 20120426
  21. TALION [Concomitant]
     Dosage: 20 MG, QD
     Route: 048
     Dates: start: 20120314, end: 20120705
  22. MYSER [Concomitant]
     Dosage: UNK, QD
     Route: 061
     Dates: start: 20120426
  23. ALLOPURINOL [Concomitant]
     Dosage: 100 MG, QD
     Route: 048
  24. URSODEOXYCHOLIC ACID [Concomitant]
     Dosage: 600 MG, QD
     Route: 048

REACTIONS (2)
  - White blood cell count decreased [Recovered/Resolved]
  - Blood creatinine increased [Recovered/Resolved]
